FAERS Safety Report 7683965-4 (Version None)
Quarter: 2011Q3

REPORT INFORMATION
  Report Type: 
  Country: None (occurrence: None)
  Receive Date: 20110815
  Receipt Date: 20110810
  Transmission Date: 20111222
  Serious: Yes (Other)
  Sender: FDA-Public Use
  Company Number: US-ABBOTT-11P-163-0840964-00

PATIENT
  Sex: Female
  Weight: 59.02 kg

DRUGS (5)
  1. LEVOTHYROXINE SODIUM [Concomitant]
     Indication: HYPOTHYROIDISM
     Route: 048
  2. HYDROCYCLORIZINE [Concomitant]
     Indication: HYPERTENSION
     Route: 048
  3. HUMIRA [Suspect]
     Indication: RHEUMATOID ARTHRITIS
     Route: 058
     Dates: start: 20040101
  4. CALCIUM CARBONATE [Concomitant]
     Indication: MINERAL SUPPLEMENTATION
     Route: 048
  5. UNKNOWN MEDICATION [Concomitant]
     Indication: OSTEOPOROSIS
     Route: 048

REACTIONS (2)
  - RHEUMATOID ARTHRITIS [None]
  - ASTHENIA [None]
